FAERS Safety Report 15740021 (Version 4)
Quarter: 2020Q4

REPORT INFORMATION
  Report Type: Spontaneous
  Country: US (occurrence: US)
  Receive Date: 20181219
  Receipt Date: 20201130
  Transmission Date: 20210113
  Serious: Yes (Hospitalization, Other)
  Sender: FDA-Public Use
  Company Number: US-SA-2018SA389675

PATIENT

DRUGS (2)
  1. AUBAGIO [Suspect]
     Active Substance: TERIFLUNOMIDE
     Dosage: 7 MG, QD
     Route: 048
     Dates: start: 20190328
  2. AUBAGIO [Suspect]
     Active Substance: TERIFLUNOMIDE
     Indication: MULTIPLE SCLEROSIS
     Dosage: 7 MG, QD
     Route: 048
     Dates: start: 20160405

REACTIONS (9)
  - Multiple sclerosis relapse [Unknown]
  - Dizziness postural [Unknown]
  - Orthostatic hypotension [Unknown]
  - Hospitalisation [Unknown]
  - Feeling abnormal [Unknown]
  - Muscle spasms [Unknown]
  - Balance disorder [Not Recovered/Not Resolved]
  - Depression [Unknown]
  - Headache [Unknown]

NARRATIVE: CASE EVENT DATE: 2018
